FAERS Safety Report 19497821 (Version 1)
Quarter: 2021Q3

REPORT INFORMATION
  Report Type: Spontaneous
  Country: DE (occurrence: DE)
  Receive Date: 20210706
  Receipt Date: 20210706
  Transmission Date: 20211014
  Serious: Yes (Hospitalization)
  Sender: FDA-Public Use
  Company Number: DE-TEVA-2021-DE-1929606

PATIENT
  Age: 81 Year
  Sex: Female

DRUGS (5)
  1. VERAPAMIL [Suspect]
     Active Substance: VERAPAMIL HYDROCHLORIDE
     Dosage: 80 MILLIGRAM DAILY; 1?0?0?0
  2. METHOTREXAT [Concomitant]
     Active Substance: METHOTREXATE
     Dosage: 17.5 MG
     Route: 030
  3. CANDESARTAN. [Concomitant]
     Active Substance: CANDESARTAN
     Dosage: 4 MILLIGRAM DAILY;  1?0?0?0
  4. LEVOTHYROXIN?NATRIUM [Concomitant]
     Active Substance: LEVOTHYROXINE SODIUM
     Dosage: 75 MICROGRAM DAILY; 1?0?0?0
  5. VIANI FORTE 50G/500G DISKUS [Concomitant]
     Dosage: 2 DOSAGE FORMS DAILY; 500 | 50 MCG, 1?0?1?0, DISCUS

REACTIONS (7)
  - Hypertension [Unknown]
  - Dizziness [Unknown]
  - Headache [Unknown]
  - Bradycardia [Unknown]
  - Performance status decreased [Unknown]
  - Angina pectoris [Unknown]
  - Fatigue [Unknown]
